FAERS Safety Report 8583917 (Version 2)
Quarter: 2012Q4

REPORT INFORMATION
  Report Type: 
  Country: US (occurrence: US)
  Receive Date: 20120529
  Receipt Date: 20121001
  Transmission Date: 20130627
  Serious: Yes (Other)
  Sender: FDA-Public Use
  Company Number: US-ROCHE-1069675

PATIENT
  Sex: Female
  Weight: 94.43 kg

DRUGS (2)
  1. ACCUTANE [Suspect]
     Indication: FURUNCLE
     Route: 065
     Dates: start: 198808, end: 198902
  2. ACCUTANE [Suspect]
     Indication: ACNE

REACTIONS (6)
  - Colitis ulcerative [Unknown]
  - Inflammatory bowel disease [Unknown]
  - Depression [Unknown]
  - Injury [Unknown]
  - Diverticulitis [Unknown]
  - Irritable bowel syndrome [Unknown]
